FAERS Safety Report 7443162-4 (Version None)
Quarter: 2011Q2

REPORT INFORMATION
  Report Type: 
  Country: None (occurrence: None)
  Receive Date: 20110428
  Receipt Date: 20110421
  Transmission Date: 20111010
  Serious: Yes (Hospitalization)
  Sender: FDA-Public Use
  Company Number: A0924388A

PATIENT
  Age: 73 Year
  Sex: Male

DRUGS (1)
  1. LOVAZA [Suspect]
     Dosage: 4G UNKNOWN
     Route: 048

REACTIONS (2)
  - HAEMORRHAGE [None]
  - CEREBROVASCULAR ACCIDENT [None]
